FAERS Safety Report 9920102 (Version 2)
Quarter: 2014Q1

REPORT INFORMATION
  Report Type: Spontaneous
  Country: JP (occurrence: JP)
  Receive Date: 20140224
  Receipt Date: 20140303
  Transmission Date: 20141002
  Serious: Yes (Death, Hospitalization, Other)
  Sender: FDA-Public Use
  Company Number: JP-PFIZER INC-2014048724

PATIENT
  Age: 83 Year
  Sex: Male

DRUGS (4)
  1. SOLU-CORTEF [Suspect]
     Indication: MULTI-ORGAN FAILURE
     Dosage: UNK
     Route: 042
  2. SOLU-CORTEF [Suspect]
     Indication: ADRENAL INSUFFICIENCY
  3. GAMMA GLOBULIN [Concomitant]
     Indication: MULTI-ORGAN FAILURE
     Dosage: UNK
  4. DORIPENEM [Concomitant]
     Dosage: UNK

REACTIONS (2)
  - Candida sepsis [Fatal]
  - Candida pneumonia [Fatal]
